FAERS Safety Report 5965155-6 (Version None)
Quarter: 2008Q4

REPORT INFORMATION
  Report Type: 
  Country: None (occurrence: None)
  Receive Date: 20081125
  Receipt Date: 20081121
  Transmission Date: 20090506
  Serious: Yes (Death, Other)
  Sender: FDA-Public Use
  Company Number: PHHY2008JP28188

PATIENT
  Age: 13 Year
  Sex: Female

DRUGS (13)
  1. CYCLOSPORINE [Suspect]
     Indication: CORD BLOOD TRANSPLANT THERAPY
     Dosage: UNK
     Route: 065
     Dates: start: 20060101
  2. CYCLOSPORINE [Suspect]
     Indication: PROPHYLAXIS AGAINST GRAFT VERSUS HOST DISEASE
  3. CYTARABINE [Concomitant]
     Dosage: UNK
     Dates: start: 20050822
  4. CYTARABINE [Concomitant]
     Dosage: UNK
     Dates: start: 20051018
  5. MITOXANTRONE [Concomitant]
     Dosage: UNK
     Dates: start: 20050822
  6. ETOPOSIDE [Concomitant]
     Dosage: UNK
     Dates: start: 20050822
  7. IDARUBICIN HCL [Concomitant]
     Dosage: UNK
     Dates: start: 20051018
  8. RADIOTHERAPY [Concomitant]
  9. FLUDARABINE PHOSPHATE [Concomitant]
     Dosage: 125 MG/M2
  10. BUSULFAN [Concomitant]
     Dosage: 8 MG/KG
  11. GANCICLOVIR [Concomitant]
  12. L-PAM [Concomitant]
     Dosage: 210 MG/M2
  13. ATGAM [Concomitant]
     Dosage: 45 MG/KG

REACTIONS (9)
  - CYTOMEGALOVIRUS INFECTION [None]
  - ENGRAFT FAILURE [None]
  - FACIAL PALSY [None]
  - GRAFT VERSUS HOST DISEASE [None]
  - JAUNDICE [None]
  - LEUKAEMIA RECURRENT [None]
  - PANCREATITIS [None]
  - PANCYTOPENIA [None]
  - TOXIC ENCEPHALOPATHY [None]
